FAERS Safety Report 12952613 (Version 2)
Quarter: 2017Q2

REPORT INFORMATION
  Report Type: Spontaneous
  Country: US (occurrence: US)
  Receive Date: 20161117
  Receipt Date: 20170517
  Transmission Date: 20170830
  Serious: No
  Sender: FDA-Public Use
  Company Number: US-SA-2016SA187880

PATIENT
  Age: 82 Year
  Sex: Female

DRUGS (15)
  1. METOPROLOL. [Concomitant]
     Active Substance: METOPROLOL
     Indication: CARDIAC DISORDER
  2. METFORMIN [Concomitant]
     Active Substance: METFORMIN HYDROCHLORIDE
  3. CALCIUM [Concomitant]
     Active Substance: CALCIUM
  4. LANTUS SOLOSTAR [Concomitant]
     Active Substance: INSULIN GLARGINE
  5. LANTUS SOLOSTAR [Concomitant]
     Active Substance: INSULIN GLARGINE
  6. LISINOPRIL. [Concomitant]
     Active Substance: LISINOPRIL
  7. CLONIDINE. [Concomitant]
     Active Substance: CLONIDINE
  8. SOLOSTAR [Concomitant]
     Active Substance: DEVICE
     Indication: TYPE 2 DIABETES MELLITUS
     Dates: start: 20160508, end: 20160807
  9. PRAVASTATIN. [Concomitant]
     Active Substance: PRAVASTATIN
     Indication: CARDIAC DISORDER
  10. HUMALOG [Concomitant]
     Active Substance: INSULIN LISPRO
     Dosage: BREAKFAST- 5 UNITS, LUNCH-8 UNITS, DINNER- 12 UNITS
  11. TOUJEO [Suspect]
     Active Substance: INSULIN GLARGINE
     Indication: TYPE 2 DIABETES MELLITUS
     Dosage: DOSE:18 UNIT(S)
     Route: 065
     Dates: start: 20160508, end: 20160808
  12. SOLOSTAR [Concomitant]
     Active Substance: DEVICE
  13. ASPIRIN. [Concomitant]
     Active Substance: ASPIRIN
     Indication: CARDIAC DISORDER
  14. AMLODIPINE [Concomitant]
     Active Substance: AMLODIPINE BESYLATE
     Indication: DIABETES MELLITUS
  15. SOLOSTAR [Concomitant]
     Active Substance: DEVICE

REACTIONS (2)
  - Weight increased [Recovered/Resolved]
  - Peripheral swelling [Recovered/Resolved]

NARRATIVE: CASE EVENT DATE: 20160612
